FAERS Safety Report 15454043 (Version 1)
Quarter: 2018Q4

REPORT INFORMATION
  Report Type: Spontaneous
  Country: US (occurrence: US)
  Receive Date: 20181002
  Receipt Date: 20181002
  Transmission Date: 20190204
  Serious: Yes (Congenital Anomaly, Other)
  Sender: FDA-Public Use
  Company Number: US-ABBVIE-18S-163-2498009-00

PATIENT
  Sex: Male

DRUGS (1)
  1. DEPAKOTE [Suspect]
     Active Substance: DIVALPROEX SODIUM
     Indication: MATERNAL EXPOSURE TIMING UNSPECIFIED
     Route: 064

REACTIONS (6)
  - Intellectual disability [Unknown]
  - Speech disorder [Unknown]
  - Language disorder [Unknown]
  - Auditory disorder [Unknown]
  - Foot deformity [Unknown]
  - Foetal exposure during pregnancy [Unknown]
